FAERS Safety Report 4693999-X (Version None)
Quarter: 2005Q2

REPORT INFORMATION
  Report Type: 
  Country: None (occurrence: None)
  Receive Date: 20050616
  Receipt Date: 20050602
  Transmission Date: 20051028
  Serious: Yes (Hospitalization)
  Sender: FDA-Public Use
  Company Number: 2005S1000109

PATIENT
  Age: 42 Year
  Sex: Female
  Weight: 92.3 kg

DRUGS (5)
  1. CUBICIN [Suspect]
     Indication: STAPHYLOCOCCAL OSTEOMYELITIS
     Dosage: 6 MG/KG; Q12H; IV
     Route: 042
     Dates: start: 20050501, end: 20050601
  2. CYCLOBENZAPRINE HCL [Concomitant]
  3. OXYCODONE HCL [Concomitant]
  4. ANTIHYPERTENSIVE [Concomitant]
  5. VANCOMYCIN [Concomitant]

REACTIONS (5)
  - ERYTHEMA [None]
  - HEADACHE [None]
  - HERPES ZOSTER [None]
  - NAUSEA [None]
  - PAPILLOEDEMA [None]
